FAERS Safety Report 21023008 (Version 1)
Quarter: 2022Q2

REPORT INFORMATION
  Report Type: Report from Study
  Country: CH (occurrence: None)
  Receive Date: 20220629
  Receipt Date: 20220629
  Transmission Date: 20220720
  Serious: Yes (Hospitalization)
  Sender: FDA-Public Use
  Company Number: CH-Eisai Medical Research-EC-2022-117892

PATIENT
  Age: 66 Year
  Sex: Male
  Weight: 74.1 kg

DRUGS (27)
  1. LENVATINIB [Suspect]
     Active Substance: LENVATINIB
     Indication: Malignant melanoma
     Route: 048
     Dates: start: 20210830, end: 20211020
  2. LENVATINIB [Suspect]
     Active Substance: LENVATINIB
     Route: 048
     Dates: start: 20211028, end: 20211101
  3. LENVATINIB [Suspect]
     Active Substance: LENVATINIB
     Dosage: FLUCTUATED DOSAGE
     Route: 048
     Dates: start: 20211123
  4. QUAVONLIMAB [Suspect]
     Active Substance: QUAVONLIMAB
     Indication: Malignant melanoma
     Dosage: MK-1308 25 MG (+) PEMBROLIZUMAB 400 MG
     Route: 042
     Dates: start: 20210830, end: 20210830
  5. QUAVONLIMAB [Suspect]
     Active Substance: QUAVONLIMAB
     Dosage: MK-1308 25 MG (+) PEMBROLIZUMAB 400 MG
     Route: 042
     Dates: start: 20211008, end: 20211008
  6. QUAVONLIMAB [Suspect]
     Active Substance: QUAVONLIMAB
     Dosage: MK-1308 25 MG (+) PEMBROLIZUMAB 400 MG
     Route: 042
     Dates: start: 20211123
  7. ASPIRIN [Concomitant]
     Active Substance: ASPIRIN
     Dates: start: 2000, end: 20220120
  8. GLUCOPHAGE [Concomitant]
     Active Substance: METFORMIN HYDROCHLORIDE
     Dates: start: 2000, end: 20211026
  9. FLECTOR [Concomitant]
     Active Substance: DICLOFENAC EPOLAMINE
     Dates: start: 20211008
  10. BILASTINE [Concomitant]
     Active Substance: BILASTINE
     Dates: start: 20211018
  11. PRURI MED LIPOLOTION [Concomitant]
     Route: 061
     Dates: start: 20211018
  12. CLOBETASOL [Concomitant]
     Active Substance: CLOBETASOL
     Dates: start: 20211020
  13. HYDROCORTISONE [Concomitant]
     Active Substance: HYDROCORTISONE
     Dates: start: 20211021, end: 20211028
  14. LEVOTHYROXINE [Concomitant]
     Active Substance: LEVOTHYROXINE
     Dates: start: 20211021
  15. INSULIN NOS [Concomitant]
     Active Substance: INSULIN NOS
     Dates: start: 20211022, end: 20220511
  16. IMODIUM [Concomitant]
     Active Substance: LOPERAMIDE HYDROCHLORIDE
     Dates: start: 20211022
  17. AMPHOTERICIN B [Concomitant]
     Active Substance: AMPHOTERICIN B
     Dates: start: 20211023, end: 20220120
  18. CLOBETASOL PROPIONATE [Concomitant]
     Active Substance: CLOBETASOL PROPIONATE
     Dates: start: 20211026, end: 20220120
  19. GLUCOPHAGE [Concomitant]
     Active Substance: METFORMIN HYDROCHLORIDE
     Dates: start: 20211027, end: 20220511
  20. HYDROCORTISONE [Concomitant]
     Active Substance: HYDROCORTISONE
     Dates: start: 20211029, end: 20211201
  21. ST. JOHN^S WORT [Concomitant]
     Active Substance: ST. JOHN^S WORT
     Dates: start: 2000
  22. MAGNESIUM [Concomitant]
     Active Substance: MAGNESIUM
     Dates: start: 2019
  23. EZETIMIBE [Concomitant]
     Active Substance: EZETIMIBE
     Dates: start: 20210603
  24. ATORVASTATIN [Concomitant]
     Active Substance: ATORVASTATIN
     Dates: start: 20210603
  25. PEMBROLIZUMAB [Suspect]
     Active Substance: PEMBROLIZUMAB
  26. PEMBROLIZUMAB [Suspect]
     Active Substance: PEMBROLIZUMAB
  27. PEMBROLIZUMAB [Suspect]
     Active Substance: PEMBROLIZUMAB

REACTIONS (1)
  - Anaemia [Not Recovered/Not Resolved]

NARRATIVE: CASE EVENT DATE: 20211104
